FAERS Safety Report 17647693 (Version 1)
Quarter: 2020Q2

REPORT INFORMATION
  Report Type: Report from Study
  Country: CA (occurrence: CA)
  Receive Date: 20200408
  Receipt Date: 20200408
  Transmission Date: 20200713
  Serious: Yes (Other)
  Sender: FDA-Public Use
  Company Number: CA-GLAXOSMITHKLINE-CA2020AMR060772

PATIENT
  Sex: Male

DRUGS (1)
  1. MEPOLIZUMAB [Suspect]
     Active Substance: MEPOLIZUMAB
     Indication: ASTHMA
     Dosage: 100 MG, Z, MONTHLY
     Route: 042
     Dates: start: 20190311

REACTIONS (6)
  - Lacunar infarction [Unknown]
  - Kyphosis [Unknown]
  - Spinal stenosis [Unknown]
  - Myelomalacia [Unknown]
  - Cerebellar infarction [Unknown]
  - Syringomyelia [Unknown]
